FAERS Safety Report 9511958 (Version 1)
Quarter: 2013Q3

REPORT INFORMATION
  Report Type: Report from Study
  Country: BR (occurrence: BR)
  Receive Date: 20130910
  Receipt Date: 20130910
  Transmission Date: 20140515
  Serious: Yes (Other)
  Sender: FDA-Public Use
  Company Number: PHHY2013BR098551

PATIENT
  Sex: Male
  Weight: 67 kg

DRUGS (3)
  1. FORASEQ [Suspect]
     Indication: ASTHMA
     Dosage: 1 DF, (1 CAPSULE EACH TREATMENT AT NIGHT)
  2. DIOVAN [Suspect]
     Indication: HYPERTENSION
     Dosage: 80 MG, QD
     Route: 048
  3. AZOPT [Concomitant]
     Dosage: UNK UKN, UNK

REACTIONS (1)
  - Heart disease congenital [Recovering/Resolving]
